FAERS Safety Report 10642751 (Version 1)
Quarter: 2014Q4

REPORT INFORMATION
  Report Type: Spontaneous
  Country: US (occurrence: None)
  Receive Date: 20141121
  Receipt Date: 20141121
  Transmission Date: 20150529
  Serious: No
  Sender: FDA-Public Use
  Company Number: 163-10004-14074564

PATIENT
  Age: 62 Year
  Sex: Male
  Weight: 95.26 kg

DRUGS (6)
  1. CELEXBREX (CELECOXIB) [Concomitant]
  2. SULFASALAZINE. [Concomitant]
     Active Substance: SULFASALAZINE
  3. TRAMADOL [Concomitant]
     Active Substance: TRAMADOL
  4. ZOLPIDEM [Concomitant]
     Active Substance: ZOLPIDEM\ZOLPIDEM TARTRATE
  5. TIZANIDINE HCL (TIZANIDINE HYDROCHLORIDE) [Concomitant]
  6. OTEZLA [Suspect]
     Active Substance: APREMILAST
     Indication: PSORIATIC ARTHROPATHY
     Route: 048
     Dates: start: 201406, end: 20140721

REACTIONS (3)
  - Restless legs syndrome [None]
  - Insomnia [None]
  - Feeling jittery [None]

NARRATIVE: CASE EVENT DATE: 201407
